FAERS Safety Report 13967064 (Version 1)
Quarter: 2017Q3

REPORT INFORMATION
  Report Type: Spontaneous
  Country: US (occurrence: US)
  Receive Date: 20170914
  Receipt Date: 20170914
  Transmission Date: 20171128
  Serious: Yes (Disabling)
  Sender: FDA-Public Use
  Company Number: None

PATIENT
  Age: 53 Year
  Sex: Female
  Weight: 103.5 kg

DRUGS (8)
  1. BURPROPION [Suspect]
     Active Substance: BUPROPION
     Indication: DEPRESSION
     Dates: start: 20150501
  2. VALSARTAN. [Concomitant]
     Active Substance: VALSARTAN
  3. LAMICTAL [Concomitant]
     Active Substance: LAMOTRIGINE
  4. ALEVE [Concomitant]
     Active Substance: NAPROXEN SODIUM
  5. ISENTRESS [Concomitant]
     Active Substance: RALTEGRAVIR POTASSIUM
  6. TRUVADA [Concomitant]
     Active Substance: EMTRICITABINE\TENOFOVIR DISOPROXIL FUMARATE
  7. VALTREX [Concomitant]
     Active Substance: VALACYCLOVIR HYDROCHLORIDE
  8. NORVASC [Concomitant]
     Active Substance: AMLODIPINE BESYLATE

REACTIONS (3)
  - Insomnia [None]
  - Irritability [None]
  - Depression [None]

NARRATIVE: CASE EVENT DATE: 20170830
